FAERS Safety Report 9216843 (Version 8)
Quarter: 2014Q2

REPORT INFORMATION
  Report Type: Report from Study
  Country: JP (occurrence: JP)
  Receive Date: 20130408
  Receipt Date: 20140410
  Transmission Date: 20141212
  Serious: Yes (Death, Life-Threatening)
  Sender: FDA-Public Use
  Company Number: JP-PFIZER INC-2013107396

PATIENT
  Age: 85 Year
  Sex: Male
  Weight: 59 kg

DRUGS (13)
  1. TYGACIL [Suspect]
     Indication: INFECTION
     Dosage: 100 MG, 1X/DAY
     Route: 041
     Dates: start: 20130207, end: 20130207
  2. TYGACIL [Suspect]
     Dosage: 50 MG, 2X/DAY
     Route: 041
     Dates: start: 20130208, end: 20130211
  3. TYGACIL [Suspect]
     Dosage: 50 MG, 1X/DAY
     Route: 041
     Dates: start: 20130212, end: 20130212
  4. CRAVIT [Concomitant]
     Dosage: 500 MG, DAILY
     Route: 041
     Dates: start: 20130208, end: 20130212
  5. OMEPRAZOLE [Concomitant]
     Dosage: 20 MG, 2X/DAY
     Route: 041
     Dates: end: 20130213
  6. MIDAZOLAM [Concomitant]
     Dosage: 50 MG/DAY
     Route: 041
     Dates: end: 20130215
  7. FENTANYL [Concomitant]
     Dosage: 0.5 MG/DAY
     Route: 041
     Dates: end: 20130215
  8. NORADRENALINE [Concomitant]
     Dosage: 5 MG/DAY
     Route: 041
     Dates: end: 20130213
  9. RECOMODULIN [Concomitant]
     Dosage: 25600 IU/DAY
     Route: 041
     Dates: end: 20130212
  10. NEUART [Concomitant]
     Dosage: 1500 IU/DAY
     Route: 041
     Dates: end: 20130212
  11. VENOGLOBULIN [Concomitant]
     Dosage: 5 G/DAY
     Route: 041
     Dates: end: 20130210
  12. LACTEC [Concomitant]
     Dosage: 6000 ML, DAILY
     Route: 041
     Dates: end: 20130209
  13. ELNEOPA [Concomitant]
     Dosage: 2000 ML, DAILY
     Route: 041
     Dates: end: 20130212

REACTIONS (2)
  - Renal impairment [Not Recovered/Not Resolved]
  - Septic shock [Fatal]
